FAERS Safety Report 23159195 (Version 1)
Quarter: 2023Q4

REPORT INFORMATION
  Report Type: Spontaneous
  Country: US (occurrence: None)
  Receive Date: 20231107
  Receipt Date: 20231107
  Transmission Date: 20240109
  Serious: Yes (Life-Threatening)
  Sender: FDA-Public Use
  Company Number: None

PATIENT
  Age: 81 Year
  Sex: Female

DRUGS (1)
  1. PACLITAXEL [Suspect]
     Active Substance: PACLITAXEL
     Route: 042

REACTIONS (4)
  - Infusion related reaction [None]
  - Malaise [None]
  - Cardio-respiratory arrest [None]
  - Heart rate decreased [None]

NARRATIVE: CASE EVENT DATE: 20231025
